FAERS Safety Report 16657887 (Version 1)
Quarter: 2019Q3

REPORT INFORMATION
  Report Type: Spontaneous
  Country: TW (occurrence: TW)
  Receive Date: 20190801
  Receipt Date: 20190801
  Transmission Date: 20191004
  Serious: Yes (Other)
  Sender: FDA-Public Use
  Company Number: PHHY2014TW185340

PATIENT
  Sex: Male

DRUGS (3)
  1. FOLIC ACID. [Concomitant]
     Active Substance: FOLIC ACID
     Indication: PRODUCT USED FOR UNKNOWN INDICATION
     Route: 065
  2. BISOPROLOL [Concomitant]
     Active Substance: BISOPROLOL
     Indication: HYPERTENSION
     Dosage: UNK
     Route: 065
  3. AMLODIPINE [Suspect]
     Active Substance: AMLODIPINE BESYLATE
     Indication: HYPERTENSION
     Dosage: 5 MG, QD
     Route: 048

REACTIONS (10)
  - Abdominal discomfort [Unknown]
  - Malaise [Unknown]
  - Anaemia [Unknown]
  - Pyrexia [Unknown]
  - Nocturia [Unknown]
  - Dizziness [Unknown]
  - Primary myelofibrosis [Unknown]
  - Hypertension [Unknown]
  - Leukaemia [Unknown]
  - Tachycardia [Unknown]
